FAERS Safety Report 7712302-1 (Version None)
Quarter: 2011Q3

REPORT INFORMATION
  Report Type: 
  Country: None (occurrence: None)
  Receive Date: 20110826
  Receipt Date: 20110819
  Transmission Date: 20111222
  Serious: Yes (Other)
  Sender: FDA-Public Use
  Company Number: US-PFIZER INC-2006089663

PATIENT
  Sex: Female

DRUGS (3)
  1. LIPITOR [Suspect]
     Dosage: 10 MG, DAILY
     Route: 048
     Dates: start: 20021201
  2. LIPITOR [Suspect]
     Dosage: 20 MG, DAILY
     Route: 048
     Dates: start: 20040701
  3. LIPITOR [Suspect]
     Dosage: 20 MG, 1X/DAY
     Dates: start: 20050519

REACTIONS (11)
  - NEUROPATHY PERIPHERAL [None]
  - SLEEP DISORDER [None]
  - ANXIETY [None]
  - INTERSTITIAL LUNG DISEASE [None]
  - GAIT DISTURBANCE [None]
  - DIZZINESS [None]
  - AMNESIA [None]
  - MYOPATHY [None]
  - IRRITABILITY [None]
  - DEPRESSION [None]
  - DISORIENTATION [None]
